FAERS Safety Report 5134171-9 (Version None)
Quarter: 2006Q4

REPORT INFORMATION
  Report Type: 
  Country: None (occurrence: None)
  Receive Date: 20061024
  Receipt Date: 20061013
  Transmission Date: 20070319
  Serious: Yes (Other)
  Sender: FDA-Public Use
  Company Number: US-MERCK-0610USA11457

PATIENT
  Age: 38 Year
  Sex: Male

DRUGS (1)
  1. HYZAAR [Suspect]
     Route: 048

REACTIONS (6)
  - ADVERSE EVENT [None]
  - ANXIETY [None]
  - BLOOD PRESSURE INCREASED [None]
  - COMA [None]
  - DEPERSONALISATION [None]
  - TACHYCARDIA [None]
